FAERS Safety Report 9194029 (Version 1)
Quarter: 2013Q1

REPORT INFORMATION
  Report Type: Spontaneous
  Country: FR (occurrence: FR)
  Receive Date: 20130327
  Receipt Date: 20130327
  Transmission Date: 20140127
  Serious: Yes (Hospitalization)
  Sender: FDA-Public Use
  Company Number: FR-PFIZER INC-2013092547

PATIENT
  Age: 60 Year
  Sex: Male

DRUGS (6)
  1. REVATIO [Suspect]
     Indication: PULMONARY HYPERTENSION
     Dosage: 60 MG DAILY
     Route: 048
     Dates: start: 201106
  2. LASILIX [Concomitant]
  3. KENZEN [Concomitant]
     Dosage: 16 MG
  4. INEXIUM [Concomitant]
  5. SYMBICORT TURBUHALER [Concomitant]
  6. SPIRIVA [Concomitant]

REACTIONS (1)
  - Mania [Recovered/Resolved]
